FAERS Safety Report 9379887 (Version 1)
Quarter: 2013Q3

REPORT INFORMATION
  Report Type: Report from Study
  Country: US (occurrence: US)
  Receive Date: 20130702
  Receipt Date: 20130702
  Transmission Date: 20140515
  Serious: Yes (Death)
  Sender: FDA-Public Use
  Company Number: US-PFIZER INC-2013193114

PATIENT
  Age: 62 Year
  Sex: Male
  Weight: 84.8 kg

DRUGS (15)
  1. DOXORUBICIN HCL [Suspect]
     Indication: SARCOMA METASTATIC
     Dosage: SOLUTION FOR INFUSION; REGIMEN #1, CYCLIC
     Route: 040
     Dates: start: 20120919
  2. DOXORUBICIN HCL [Suspect]
     Dosage: SOLUTION FOR INFUSION; REGIMEN #2, 153MG TOTAL DOSE, CYCLCE 3
     Route: 040
     Dates: start: 20121031
  3. ACETAMINOPHEN [Concomitant]
     Dosage: UNK
     Dates: start: 20121024
  4. DIPHENHYDRAMINE HCL [Concomitant]
     Dosage: UNK
     Dates: start: 20121024
  5. HYDROCORTISONE [Concomitant]
     Dosage: UNK
     Dates: start: 20121024
  6. HYDROMORPHONE [Concomitant]
     Dosage: UNK
     Dates: start: 20121024
  7. OXYCODONE HYDROCHLORIDE [Concomitant]
     Dosage: UNK
     Dates: start: 20121010
  8. OXYCONTIN [Concomitant]
     Dosage: UNK
     Dates: start: 20121001
  9. ONDANSETRON [Concomitant]
     Dosage: UNK
     Dates: start: 20121001
  10. LIDOCAINE [Concomitant]
     Dosage: UNK
     Dates: start: 20121001
  11. PROMETHAZINE [Concomitant]
     Dosage: UNK
     Dates: start: 20120912
  12. VALSARTAN [Concomitant]
     Dosage: UNK
     Dates: start: 20120827
  13. DOCUSATE [Concomitant]
     Dosage: UNK
     Dates: start: 20120827
  14. OMEPRAZOLE [Concomitant]
     Dosage: UNK
     Dates: start: 20120827
  15. CETIRIZINE [Concomitant]
     Dosage: UNK
     Dates: start: 20120827

REACTIONS (1)
  - Septic shock [Fatal]
